FAERS Safety Report 8737875 (Version 4)
Quarter: 2013Q1

REPORT INFORMATION
  Report Type: Report from Study
  Country: US (occurrence: US)
  Receive Date: 20120823
  Receipt Date: 20130212
  Transmission Date: 20140127
  Serious: Yes (Other)
  Sender: FDA-Public Use
  Company Number: US-009507513-1208USA007763

PATIENT
  Age: 67 Year
  Sex: Male

DRUGS (13)
  1. MK-2452 [Suspect]
     Indication: OCULAR HYPERTENSION
     Dosage: 1 GTT, QD
     Route: 047
     Dates: start: 20120801, end: 20120814
  2. STUDY DRUG (UNSPECIFIED) [Suspect]
     Indication: OCULAR HYPERTENSION
     Dosage: 1 GTT, QD
     Route: 047
     Dates: start: 20120801, end: 20120814
  3. LISINOPRIL [Concomitant]
  4. CYANOCOBALAMIN [Concomitant]
  5. VITAMINS (UNSPECIFIED) [Concomitant]
  6. FOLIC ACID [Concomitant]
  7. PYRIDOXINE HYDROCHLORIDE [Concomitant]
  8. ASPIRIN [Concomitant]
  9. CALCIUM POLYCARBOPHIL [Concomitant]
  10. HYDROCHLOROTHIAZIDE [Concomitant]
  11. LACTOBACILLUS ACIDOPHILUS [Concomitant]
  12. SIMVASTATIN [Concomitant]
  13. BRINZOLAMIDE [Concomitant]
     Indication: OCULAR HYPERTENSION
     Dosage: UNK
     Dates: start: 20120603, end: 20120726

REACTIONS (1)
  - Anterior chamber cell [Recovered/Resolved]
